FAERS Safety Report 21058653 (Version 2)
Quarter: 2022Q3

REPORT INFORMATION
  Report Type: Spontaneous
  Country: CA (occurrence: CA)
  Receive Date: 20220708
  Receipt Date: 20220812
  Transmission Date: 20221027
  Serious: Yes (Other)
  Sender: FDA-Public Use
  Company Number: CA-PFIZER INC-202101467043

PATIENT
  Age: 58 Year
  Sex: Female

DRUGS (1)
  1. RUXIENCE [Suspect]
     Active Substance: RITUXIMAB-PVVR
     Indication: Autoimmune myositis
     Dosage: 1000 MG, (DAY 1 AND DAY 15) (NOT STARTED YET)
     Route: 042

REACTIONS (2)
  - Trigger finger [Unknown]
  - Off label use [Unknown]

NARRATIVE: CASE EVENT DATE: 20211014
